FAERS Safety Report 8103865-5 (Version None)
Quarter: 2012Q1

REPORT INFORMATION
  Report Type: 
  Country: None (occurrence: None)
  Receive Date: 20120201
  Receipt Date: 20120117
  Transmission Date: 20120608
  Serious: Yes (Other)
  Sender: FDA-Public Use
  Company Number: US-JUTA GMBH-2012-00943

PATIENT
  Age: 48 Year
  Sex: Male

DRUGS (2)
  1. TACROLIMUS [Suspect]
     Indication: RENAL TRANSPLANT
  2. TACROLIMUS [Suspect]
     Indication: IMMUNOSUPPRESSANT DRUG THERAPY
     Dosage: UNK
     Route: 065

REACTIONS (2)
  - CHOLELITHIASIS [None]
  - BILE DUCT STONE [None]
